FAERS Safety Report 6084927-3 (Version None)
Quarter: 2009Q1

REPORT INFORMATION
  Report Type: 
  Country: None (occurrence: None)
  Receive Date: 20090220
  Receipt Date: 20090210
  Transmission Date: 20090719
  Serious: Yes (Life-Threatening)
  Sender: FDA-Public Use
  Company Number: JP-JNJFOC-20090200720

PATIENT
  Sex: Male

DRUGS (4)
  1. FINIBAX [Suspect]
     Indication: GASTROENTERITIS
     Dosage: 0.25 G X 3
     Route: 041
  2. CEFOTIAM HYDROCHLORIDE [Concomitant]
     Indication: GASTROENTERITIS
     Route: 065
  3. SODIUM CHLORIDE [Concomitant]
     Dosage: 3X 100 G
  4. SODIUM CHLORIDE [Concomitant]
     Indication: GASTROENTERITIS
     Dosage: 2X 100 G

REACTIONS (1)
  - INTERSTITIAL LUNG DISEASE [None]
